FAERS Safety Report 8927203 (Version 1)
Quarter: 2012Q4

REPORT INFORMATION
  Report Type: 
  Country: GR (occurrence: GR)
  Receive Date: 20121127
  Receipt Date: 20121127
  Transmission Date: 20130627
  Serious: Yes (Other)
  Sender: FDA-Public Use
  Company Number: GR-SANOFI-AVENTIS-2012SA085224

PATIENT
  Age: 78 Year
  Sex: Female
  Weight: 50 kg

DRUGS (3)
  1. ARAVA [Suspect]
     Indication: RHEUMATOID ARTHRITIS
     Route: 048
  2. RISEDRONATE SODIUM [Concomitant]
     Indication: OSTEOPOROSIS NOS
     Dosage: dose: 1 (units not provided)
  3. PREZOLON [Concomitant]
     Indication: RHEUMATOID ARTHRITIS FLARE UP
     Dosage: dose: 1 (units not provided)

REACTIONS (1)
  - Bladder cancer [Not Recovered/Not Resolved]
